FAERS Safety Report 10364330 (Version 2)
Quarter: 2014Q4

REPORT INFORMATION
  Report Type: Spontaneous
  Country: JP (occurrence: JP)
  Receive Date: 20140806
  Receipt Date: 20141029
  Transmission Date: 20150528
  Serious: Yes (Hospitalization, Other)
  Sender: FDA-Public Use
  Company Number: JP-BRISTOL-MYERS SQUIBB COMPANY-21270657

PATIENT
  Age: 54 Year
  Sex: Male
  Weight: 84 kg

DRUGS (9)
  1. NESINA [Concomitant]
     Active Substance: ALOGLIPTIN BENZOATE
     Dosage: TABS
     Route: 048
  2. METGLUCO [Suspect]
     Active Substance: METFORMIN HYDROCHLORIDE
     Dosage: TABS
     Route: 048
  3. VESICARE [Concomitant]
     Active Substance: SOLIFENACIN SUCCINATE
  4. BUFORMIN [Concomitant]
     Active Substance: BUFORMIN
     Dosage: TABS
     Route: 048
  5. EXFORGE [Concomitant]
     Active Substance: AMLODIPINE BESYLATE\VALSARTAN
  6. ATENOLOL. [Suspect]
     Active Substance: ATENOLOL
     Indication: HYPERTENSION
     Route: 048
     Dates: end: 20140724
  7. BIPERIDEN HCL [Concomitant]
     Active Substance: BIPERIDEN HYDROCHLORIDE
  8. ABILIFY [Suspect]
     Active Substance: ARIPIPRAZOLE
     Indication: SCHIZOPHRENIA
     Dosage: UNK-24JUL14:12MG?25-30JUL14:DECREASED TO 6 MG/DAY.?31JUL-6AUG14:DECREASED TO 3 MG/DAY
     Route: 048
     Dates: end: 20140806
  9. BEZAFIBRATE [Concomitant]
     Active Substance: BEZAFIBRATE

REACTIONS (5)
  - Diabetes mellitus [Recovering/Resolving]
  - Glycosylated haemoglobin increased [Unknown]
  - Metabolic acidosis [Unknown]
  - Blood sodium decreased [Unknown]
  - Blood glucose increased [Recovering/Resolving]

NARRATIVE: CASE EVENT DATE: 2014
